FAERS Safety Report 7933658-0 (Version None)
Quarter: 2011Q4

REPORT INFORMATION
  Report Type: 
  Country: None (occurrence: None)
  Receive Date: 20111118
  Receipt Date: 20111102
  Transmission Date: 20120403
  Serious: Yes (Other)
  Sender: FDA-Public Use
  Company Number: DSA_48182_2011

PATIENT
  Sex: Female

DRUGS (1)
  1. ELIDEL [Suspect]
     Indication: PRODUCT USED FOR UNKNOWN INDICATION
     Dosage: DF TOPICAL
     Route: 061

REACTIONS (3)
  - DERMATITIS ATOPIC [None]
  - UNEVALUABLE EVENT [None]
  - INCORRECT DOSE ADMINISTERED [None]
